FAERS Safety Report 8136542-5 (Version None)
Quarter: 2012Q1

REPORT INFORMATION
  Report Type: 
  Country: None (occurrence: None)
  Receive Date: 20120214
  Receipt Date: 20120208
  Transmission Date: 20120608
  Serious: Yes (Death, Hospitalization)
  Sender: FDA-Public Use
  Company Number: PHHY2012CH007610

PATIENT
  Sex: Male

DRUGS (14)
  1. GILENYA [Suspect]
     Indication: MULTIPLE SCLEROSIS
     Dosage: UNK
     Route: 048
     Dates: start: 20110427
  2. PANTOPRAZOLE [Concomitant]
  3. SCOPOLAMINE [Concomitant]
  4. MOVIPREP [Concomitant]
  5. TIZANIDINE HCL [Suspect]
     Indication: MUSCLE SPASMS
  6. LORAZEPAM [Concomitant]
  7. ATORVASTATIN CALCIUM [Concomitant]
     Indication: HYPERCHOLESTEROLAEMIA
  8. NALOXONE [Concomitant]
  9. CLOZAPINE [Suspect]
  10. REMERON [Concomitant]
  11. SURMONTIL [Concomitant]
  12. MAGNESIOCARD [Concomitant]
  13. INDERAL [Concomitant]
  14. MOTILIUM [Concomitant]

REACTIONS (6)
  - FEELING OF DESPAIR [None]
  - PAIN [None]
  - MULTIPLE SCLEROSIS RELAPSE [None]
  - COMPLETED SUICIDE [None]
  - FEAR [None]
  - DEPRESSION [None]
